FAERS Safety Report 9612606 (Version 4)
Quarter: 2013Q4

REPORT INFORMATION
  Report Type: Report from Study
  Country: FR (occurrence: FR)
  Receive Date: 20131010
  Receipt Date: 20131111
  Transmission Date: 20140711
  Serious: Yes (Life-Threatening, Hospitalization)
  Sender: FDA-Public Use
  Company Number: FR-ELI_LILLY_AND_COMPANY-FR201307006275

PATIENT
  Age: 64 Year
  Sex: Female
  Weight: 40 kg

DRUGS (10)
  1. PEMETREXED [Suspect]
     Indication: LUNG NEOPLASM MALIGNANT
     Dosage: 500 MG/M2, EVERY 21 DAYS
     Route: 042
     Dates: start: 20121008, end: 20121023
  2. PEMETREXED [Suspect]
     Dosage: 250 MG/M2, EVERY 21 DAYS
     Route: 042
  3. FOLIC ACID [Concomitant]
     Indication: PROPHYLAXIS
     Dosage: UNK
     Dates: start: 20121008
  4. VITAMIN B12 [Concomitant]
     Indication: PROPHYLAXIS
     Dosage: UNK
     Dates: start: 20121008
  5. DEXAMETHASONE [Concomitant]
     Indication: PROPHYLAXIS
     Dosage: UNK
     Dates: start: 20121008
  6. SERETIDE                                /IRE/ [Concomitant]
     Dosage: UNK
  7. SPIRIVA [Concomitant]
     Dosage: UNK
  8. LYSANXIA [Concomitant]
     Indication: ANXIETY
     Dosage: UNK
     Dates: start: 20120924
  9. CARBOPLATIN [Concomitant]
     Indication: LUNG NEOPLASM MALIGNANT
     Dosage: UNK
     Dates: start: 20121008
  10. EMEND [Concomitant]
     Indication: PROPHYLAXIS
     Dosage: UNK
     Dates: start: 20121008

REACTIONS (2)
  - Bone marrow failure [Recovered/Resolved]
  - Stomatitis [Recovered/Resolved]
